FAERS Safety Report 7661445-X (Version None)
Quarter: 2011Q3

REPORT INFORMATION
  Report Type: 
  Country: None (occurrence: None)
  Receive Date: 20110805
  Receipt Date: 20101014
  Transmission Date: 20111222
  Serious: No
  Sender: FDA-Public Use
  Company Number: US-ABBOTT-10P-163-0678993-00

PATIENT
  Sex: Male
  Weight: 99.88 kg

DRUGS (6)
  1. ENALAPRIL MALEATE [Concomitant]
     Indication: PRODUCT USED FOR UNKNOWN INDICATION
  2. SIMVASTATIN [Concomitant]
     Indication: BLOOD CHOLESTEROL ABNORMAL
  3. NIASPAN [Suspect]
     Indication: HIGH DENSITY LIPOPROTEIN ABNORMAL
  4. CLONAZEPAM [Concomitant]
     Indication: DEPRESSION
  5. LITHIUM CARBONATE [Concomitant]
     Indication: BIPOLAR DISORDER
     Dosage: 300 MG DAILY
  6. NIASPAN [Suspect]
     Indication: LOW DENSITY LIPOPROTEIN ABNORMAL

REACTIONS (1)
  - INSOMNIA [None]
